FAERS Safety Report 8322724-6 (Version None)
Quarter: 2012Q2

REPORT INFORMATION
  Report Type: 
  Country: None (occurrence: None)
  Receive Date: 20120430
  Receipt Date: 20120420
  Transmission Date: 20120825
  Serious: Yes (Hospitalization, Other)
  Sender: FDA-Public Use
  Company Number: US-ASTRAZENECA-2012SE23108

PATIENT
  Age: 68 Year
  Sex: Female

DRUGS (16)
  1. AMITRIPTYLINE HCL [Suspect]
     Indication: HYPERTENSION
  2. CALCIUM WITH VITAMIN D [Concomitant]
  3. CRESTOR [Suspect]
     Route: 048
  4. ZYRTEC [Concomitant]
  5. EPIPEN [Concomitant]
  6. FISH OIL [Concomitant]
  7. LOSARTAN POTASSIUM AND HYDROCHLOROTHIAZIDE [Suspect]
     Dosage: 100/25 MG, ONE DAILY
  8. ZANTAC [Concomitant]
  9. LOSARTAN POTASSIUM [Suspect]
  10. VITAMIN C [Concomitant]
  11. LISINOPRIL [Suspect]
     Route: 048
  12. HYDROCHLOROTHIAZIDE [Suspect]
  13. CLONIDINE [Suspect]
  14. NEXIUM [Suspect]
     Route: 048
  15. SYNTHROID [Concomitant]
  16. MULTI-VITAMINS [Concomitant]

REACTIONS (10)
  - RASH [None]
  - URTICARIA [None]
  - LIP SWELLING [None]
  - COUGH [None]
  - THYROID CANCER [None]
  - SWOLLEN TONGUE [None]
  - PROTEIN TOTAL INCREASED [None]
  - DRUG HYPERSENSITIVITY [None]
  - GASTROOESOPHAGEAL REFLUX DISEASE [None]
  - EYE SWELLING [None]
